FAERS Safety Report 5467900-5 (Version None)
Quarter: 2007Q3

REPORT INFORMATION
  Report Type: 
  Country: None (occurrence: None)
  Receive Date: 20070926
  Receipt Date: 20070918
  Transmission Date: 20080115
  Serious: Yes (Disabling, Other)
  Sender: FDA-Public Use
  Company Number: DE-JNJFOC-20070804689

PATIENT
  Sex: Female
  Weight: 115 kg

DRUGS (3)
  1. RISPERDAL CONSTA [Suspect]
     Indication: SCHIZOAFFECTIVE DISORDER
     Route: 030
  2. MIRTAZAPINE [Concomitant]
     Indication: DEPRESSION
  3. LEVOMEPROMAZIN [Concomitant]
     Indication: SLEEP DISORDER

REACTIONS (1)
  - HEPATIC STEATOSIS [None]
